FAERS Safety Report 8555606-5 (Version None)
Quarter: 2012Q3

REPORT INFORMATION
  Report Type: 
  Country: None (occurrence: None)
  Receive Date: 20120731
  Receipt Date: 20120323
  Transmission Date: 20120928
  Serious: No
  Sender: FDA-Public Use
  Company Number: US-ASTRAZENECA-2011SE01415

PATIENT
  Age: 32 Year
  Sex: Male

DRUGS (2)
  1. SEROQUEL XR [Suspect]
     Route: 048
  2. SEROQUEL XR [Suspect]
     Indication: SCHIZOPHRENIA
     Route: 048

REACTIONS (10)
  - HALLUCINATION, AUDITORY [None]
  - DELUSION OF GRANDEUR [None]
  - PERSONALITY DISORDER [None]
  - SOMNOLENCE [None]
  - ANXIETY [None]
  - ADVERSE DRUG REACTION [None]
  - DRUG DOSE OMISSION [None]
  - MENTAL DISORDER [None]
  - PANIC ATTACK [None]
  - DRUG TOLERANCE DECREASED [None]
